FAERS Safety Report 23453887 (Version 2)
Quarter: 2024Q1

REPORT INFORMATION
  Report Type: Spontaneous
  Country: NL (occurrence: NL)
  Receive Date: 20240129
  Receipt Date: 20240209
  Transmission Date: 20240410
  Serious: Yes (Death, Life-Threatening, Hospitalization, Other)
  Sender: FDA-Public Use
  Company Number: NL-STRIDES ARCOLAB LIMITED-2024SP000787

PATIENT
  Age: 53 Year
  Sex: Female

DRUGS (6)
  1. METHOTREXATE [Suspect]
     Active Substance: METHOTREXATE
     Indication: Psoriasis
     Dosage: UNK (UNKNOWN DOSE)
     Route: 065
  2. METHOTREXATE [Suspect]
     Active Substance: METHOTREXATE
     Dosage: 2.5 MILLIGRAM, TID
     Route: 065
  3. METHOTREXATE [Suspect]
     Active Substance: METHOTREXATE
     Dosage: 2.5 MILLIGRAM, QID (PATIENT INCREASED THE DOSE ON HER OWN) (10MG/DAY)
     Route: 065
  4. IBUPROFEN [Suspect]
     Active Substance: IBUPROFEN
     Indication: Psoriasis
     Dosage: UNK
     Route: 065
  5. FLUCLOXACILLIN [Suspect]
     Active Substance: FLUCLOXACILLIN
     Indication: Psoriasis
     Dosage: UNK
     Route: 065
  6. CLOBETASOL [Concomitant]
     Active Substance: CLOBETASOL
     Indication: Psoriasis
     Dosage: UNK
     Route: 065

REACTIONS (13)
  - Shock [Fatal]
  - Myelosuppression [Fatal]
  - Streptococcal infection [Fatal]
  - Renal failure [Fatal]
  - Acute kidney injury [Unknown]
  - Hepatic failure [Fatal]
  - Epidermal necrosis [Fatal]
  - Toxic shock syndrome [Fatal]
  - Leukopenia [Unknown]
  - Pancytopenia [Unknown]
  - Toxicity to various agents [Fatal]
  - Intentional product use issue [Fatal]
  - Off label use [Unknown]
